FAERS Safety Report 7558024-1 (Version None)
Quarter: 2011Q2

REPORT INFORMATION
  Report Type: 
  Country: None (occurrence: None)
  Receive Date: 20110613
  Receipt Date: 20110603
  Transmission Date: 20111010
  Serious: Yes (Hospitalization)
  Sender: FDA-Public Use
  Company Number: WAES 1105FRA00102

PATIENT
  Age: 52 Year
  Sex: Male

DRUGS (10)
  1. PYRIDOXINE [Concomitant]
  2. CLARITHROMYCIN [Concomitant]
  3. PYRAZINAMIDE [Concomitant]
  4. LAMIVUDINE [Suspect]
     Indication: HIV INFECTION
     Dosage: 300 MG, DAILY, PO
     Route: 048
     Dates: start: 20110502
  5. ISONIAZID [Concomitant]
  6. TAB RALTEGRAVIR POTASSIUM [Suspect]
     Indication: HIV INFECTION
     Dosage: 800 MG/BID, PO
     Route: 048
     Dates: start: 20110502
  7. TENOFOVIR DISOPROXIL FUMARATE [Suspect]
     Indication: HIV INFECTION
     Dosage: 300 MG, DAILY, PO
     Route: 048
     Dates: start: 20110502
  8. RIFAMPIN [Concomitant]
  9. BACTRIM [Concomitant]
  10. ETHAMBUTOL HYDROCHLORIDE [Concomitant]

REACTIONS (7)
  - DEEP VEIN THROMBOSIS [None]
  - BRADYPHRENIA [None]
  - PYREXIA [None]
  - CONFUSIONAL STATE [None]
  - NERVOUS SYSTEM DISORDER [None]
  - PRODUCTIVE COUGH [None]
  - SOMNOLENCE [None]
